FAERS Safety Report 25220526 (Version 1)
Quarter: 2025Q2

REPORT INFORMATION
  Report Type: Report from Study
  Country: US (occurrence: US)
  Receive Date: 20250421
  Receipt Date: 20250421
  Transmission Date: 20250717
  Serious: Yes (Other)
  Sender: UCB
  Company Number: US-UCBSA-2025012276

PATIENT
  Age: 3 Year
  Sex: Female

DRUGS (5)
  1. FINTEPLA [Suspect]
     Active Substance: FENFLURAMINE
     Indication: Severe myoclonic epilepsy of infancy
     Dosage: 2.2 MILLILITER, 2X/DAY (BID)
     Route: 048
     Dates: start: 20250214
  2. CLOBAZAM [Concomitant]
     Active Substance: CLOBAZAM
     Indication: Severe myoclonic epilepsy of infancy
     Dosage: 4 MILLIGRAM, 2X/DAY (BID)
     Route: 048
  3. CLOBAZAM [Concomitant]
     Active Substance: CLOBAZAM
     Indication: Epilepsy
  4. VALPROIC ACID [Concomitant]
     Active Substance: VALPROIC ACID
     Indication: Epilepsy
  5. VALPROIC ACID [Concomitant]
     Active Substance: VALPROIC ACID
     Indication: Severe myoclonic epilepsy of infancy

REACTIONS (2)
  - Generalised tonic-clonic seizure [Recovering/Resolving]
  - Hypersomnia [Recovering/Resolving]

NARRATIVE: CASE EVENT DATE: 20250201
